FAERS Safety Report 5525724-4 (Version None)
Quarter: 2007Q4

REPORT INFORMATION
  Report Type: 
  Country: None (occurrence: None)
  Receive Date: 20071126
  Receipt Date: 20071019
  Transmission Date: 20080405
  Serious: Yes (Other)
  Sender: FDA-Public Use
  Company Number: US-ASTRAZENECA-2007UW05667

PATIENT
  Age: 493 Month
  Sex: Female
  Weight: 113.6 kg

DRUGS (12)
  1. SEROQUEL [Suspect]
     Indication: SLEEP DISORDER
     Route: 048
     Dates: start: 19970301, end: 19990901
  2. SEROQUEL [Suspect]
     Indication: POST-TRAUMATIC STRESS DISORDER
     Route: 048
     Dates: start: 19970301, end: 19990901
  3. SEROQUEL [Suspect]
     Route: 048
     Dates: start: 20001001, end: 20060501
  4. SEROQUEL [Suspect]
     Route: 048
     Dates: start: 20001001, end: 20060501
  5. CLOZARIL [Concomitant]
  6. GEODON [Concomitant]
  7. NAVANE [Concomitant]
  8. SOLIAN [Concomitant]
  9. STELAZINE [Concomitant]
  10. THORAZINE [Concomitant]
  11. TRILAFON [Concomitant]
  12. HALIPERIDOL [Concomitant]

REACTIONS (5)
  - BLOOD CHOLESTEROL INCREASED [None]
  - DIABETES MELLITUS [None]
  - IMPLANTABLE DEFIBRILLATOR INSERTION [None]
  - MYOCARDIAL INFARCTION [None]
  - RENAL FAILURE [None]
